FAERS Safety Report 7350902-1 (Version None)
Quarter: 2011Q1

REPORT INFORMATION
  Report Type: 
  Country: None (occurrence: None)
  Receive Date: 20110314
  Receipt Date: 20110308
  Transmission Date: 20110831
  Serious: No
  Sender: FDA-Public Use
  Company Number: US-PFIZER INC-2011050902

PATIENT
  Sex: Female
  Weight: 79 kg

DRUGS (1)
  1. DEPO-PROVERA [Suspect]
     Indication: CONTRACEPTION
     Dosage: UNK
     Route: 058
     Dates: start: 20101031

REACTIONS (2)
  - AMENORRHOEA [None]
  - INCORRECT ROUTE OF DRUG ADMINISTRATION [None]
